FAERS Safety Report 5380190-7 (Version None)
Quarter: 2007Q3

REPORT INFORMATION
  Report Type: 
  Country: None (occurrence: None)
  Receive Date: 20070706
  Receipt Date: 20070606
  Transmission Date: 20080115
  Serious: No
  Sender: FDA-Public Use
  Company Number: A0650642A

PATIENT
  Age: 44 Year
  Sex: Female
  Weight: 73.6 kg

DRUGS (3)
  1. TYKERB [Suspect]
     Indication: BREAST CANCER
     Route: 048
     Dates: start: 20070428, end: 20070508
  2. COREG [Concomitant]
  3. COZAAR [Concomitant]

REACTIONS (2)
  - DIARRHOEA [None]
  - RASH PRURITIC [None]
